FAERS Safety Report 23939249 (Version 1)
Quarter: 2024Q2

REPORT INFORMATION
  Report Type: Report from Study
  Country: ZA (occurrence: ZA)
  Receive Date: 20240605
  Receipt Date: 20240605
  Transmission Date: 20240715
  Serious: Yes (Other)
  Sender: FDA-Public Use
  Company Number: ZA-ABBVIE-5786457

PATIENT
  Age: 44 Year
  Sex: Male

DRUGS (1)
  1. RINVOQ [Suspect]
     Active Substance: UPADACITINIB
     Indication: Psoriatic arthropathy
     Dosage: 15 MILLIGRAM?FORM STRENGTH: 15 MG
     Route: 048
     Dates: start: 20230602, end: 202405

REACTIONS (1)
  - Hepatitis A [Not Recovered/Not Resolved]

NARRATIVE: CASE EVENT DATE: 20240501
